FAERS Safety Report 23509117 (Version 1)
Quarter: 2024Q1

REPORT INFORMATION
  Report Type: Report from Study
  Country: CA (occurrence: CA)
  Receive Date: 20240210
  Receipt Date: 20240210
  Transmission Date: 20240410
  Serious: Yes (Other)
  Sender: FDA-Public Use
  Company Number: CA-ABBVIE-5629131

PATIENT
  Sex: Female
  Weight: 97 kg

DRUGS (1)
  1. HUMIRA [Suspect]
     Active Substance: ADALIMUMAB
     Indication: Crohn^s disease
     Dosage: 40 MG Q 7D
     Route: 058
     Dates: start: 20160912

REACTIONS (3)
  - Female genital tract fistula [Unknown]
  - Diarrhoea [Unknown]
  - Abdominal pain [Unknown]
